FAERS Safety Report 15364418 (Version 1)
Quarter: 2018Q4

REPORT INFORMATION
  Report Type: Spontaneous
  Country: CN (occurrence: CN)
  Receive Date: 20180909
  Receipt Date: 20180909
  Transmission Date: 20190204
  Serious: Yes (Hospitalization, Disabling)
  Sender: FDA-Public Use
  Company Number: CN-BAXTER-2018BAX022968

PATIENT
  Age: 32 Year
  Sex: Female
  Weight: 88 kg

DRUGS (5)
  1. NUOWEIBEN [Suspect]
     Active Substance: VINORELBINE TARTRATE
     Indication: BREAST CANCER
     Dosage: AS PART OF CYCLE 2 DAY 8 (C2D8); NUOWEIBEN INJECTION + 0.9 % SODIUM CHLORIDE INJECTION
     Route: 042
     Dates: start: 20180612
  2. NUOWEIBEN [Suspect]
     Active Substance: VINORELBINE TARTRATE
     Dosage: AS PART OF CYCLE 2 DAY 8 (C2D8); NUOWEIBEN INJECTION + 0.9 % SODIUM CHLORIDE INJECTION
     Route: 041
     Dates: start: 20180619, end: 20180619
  3. 0.9% SODIUM CHLORIDE INJECTION [Suspect]
     Active Substance: SODIUM CHLORIDE
     Route: 041
     Dates: start: 20180619, end: 20180619
  4. NUOWEIBEN [Suspect]
     Active Substance: VINORELBINE TARTRATE
     Indication: CHEMOTHERAPY
     Dosage: AS PART OF CYCLE 1
     Route: 065
  5. 0.9% SODIUM CHLORIDE INJECTION [Suspect]
     Active Substance: SODIUM CHLORIDE
     Indication: MEDICATION DILUTION
     Dosage: AS PART OF CYCLE 2 DAY 8 (C2D8); NUOWEIBEN INJECTION + 0.9 % SODIUM CHLORIDE INJECTION
     Route: 042
     Dates: start: 20180612

REACTIONS (5)
  - Bone marrow failure [Unknown]
  - Skin swelling [Unknown]
  - Leukopenia [Recovering/Resolving]
  - Pyrexia [Recovering/Resolving]
  - Pain of skin [Unknown]

NARRATIVE: CASE EVENT DATE: 20180619
